FAERS Safety Report 7445340-7 (Version None)
Quarter: 2011Q2

REPORT INFORMATION
  Report Type: 
  Country: None (occurrence: None)
  Receive Date: 20110429
  Receipt Date: 20110219
  Transmission Date: 20111010
  Serious: No
  Sender: FDA-Public Use
  Company Number: A0915528A

PATIENT
  Sex: Female

DRUGS (1)
  1. ZOFRAN [Suspect]
     Indication: HYPEREMESIS GRAVIDARUM

REACTIONS (3)
  - MALAISE [None]
  - DRUG INEFFECTIVE [None]
  - DRUG EXPOSURE DURING PREGNANCY [None]
